FAERS Safety Report 9228581 (Version 2)
Quarter: 2013Q2

REPORT INFORMATION
  Report Type: Spontaneous
  Country: DE (occurrence: DE)
  Receive Date: 20130412
  Receipt Date: 20130418
  Transmission Date: 20140414
  Serious: Yes (Other)
  Sender: FDA-Public Use
  Company Number: DE-ROCHE-1212628

PATIENT
  Age: 27 Year
  Sex: Female
  Weight: 60 kg

DRUGS (5)
  1. CELLCEPT [Suspect]
     Indication: SYSTEMIC LUPUS ERYTHEMATOSUS
     Route: 048
     Dates: start: 200912
  2. CELLCEPT [Suspect]
     Indication: OFF LABEL USE
  3. PREDNISOLON [Concomitant]
     Indication: SYSTEMIC LUPUS ERYTHEMATOSUS
     Route: 048
     Dates: start: 200912
  4. BISOPROLOL [Concomitant]
     Route: 048
  5. IDEOS [Concomitant]
     Route: 048
     Dates: start: 200912

REACTIONS (2)
  - Diaphragmatic paralysis [Unknown]
  - Dyspnoea [Unknown]
